FAERS Safety Report 5682593-X (Version None)
Quarter: 2008Q1

REPORT INFORMATION
  Report Type: 
  Country: None (occurrence: None)
  Receive Date: 20080327
  Receipt Date: 20080102
  Transmission Date: 20080703
  Serious: No
  Sender: FDA-Public Use
  Company Number: US-BRISTOL-MYERS SQUIBB COMPANY-14028211

PATIENT
  Age: 93 Year
  Sex: Female
  Weight: 45 kg

DRUGS (9)
  1. ORENCIA [Suspect]
     Indication: RHEUMATOID ARTHRITIS
     Dosage: LAST INFUSION WAS GIVEN IN DECEMBER 2007
     Dates: start: 20070313
  2. MEDROL [Concomitant]
  3. PROCRIT [Concomitant]
  4. COREG [Concomitant]
  5. NEXIUM [Concomitant]
  6. METHOTREXATE TABS [Concomitant]
  7. DETROL LA [Concomitant]
  8. CENTRUM SILVER [Concomitant]
  9. CALTRATE + D [Concomitant]

REACTIONS (3)
  - EXCORIATION [None]
  - HAEMORRHAGE [None]
  - WOUND SECRETION [None]
